FAERS Safety Report 4549957-9 (Version None)
Quarter: 2005Q1

REPORT INFORMATION
  Report Type: 
  Country: None (occurrence: None)
  Receive Date: 20050110
  Receipt Date: 20050103
  Transmission Date: 20050727
  Serious: Yes (Death)
  Sender: FDA-Public Use
  Company Number: 163-20785-04100009

PATIENT
  Age: 73 Year
  Sex: Male

DRUGS (2)
  1. THALOMID [Suspect]
     Indication: MULTIPLE MYELOMA
     Dosage: 200  MG, DAILY, ORAL
     Route: 048
     Dates: start: 20020916
  2. DECADRON (DEXAMEHTASONE0 [Concomitant]

REACTIONS (2)
  - BILE DUCT CANCER [None]
  - METASTASES TO LIVER [None]
